FAERS Safety Report 15499249 (Version 1)
Quarter: 2018Q4

REPORT INFORMATION
  Report Type: Spontaneous
  Country: TR (occurrence: TR)
  Receive Date: 20181015
  Receipt Date: 20181015
  Transmission Date: 20190205
  Serious: Yes (Hospitalization)
  Sender: FDA-Public Use
  Company Number: TR-MYLANLABS-2018M1074623

PATIENT
  Age: 24 Year
  Sex: Male

DRUGS (5)
  1. MODAFINIL. [Suspect]
     Active Substance: MODAFINIL
     Dosage: 300-400MG/DAY
     Route: 048
  2. METHYLPHENIDATE. [Suspect]
     Active Substance: METHYLPHENIDATE
     Indication: ATTENTION DEFICIT/HYPERACTIVITY DISORDER
     Dosage: PRESCRIBED DOSE: 20MG/DAY.
     Route: 065
  3. OMEGA-3 FATTY ACIDS W/OMEGA-6 FATTY ACIDS [Concomitant]
     Indication: ATTENTION DEFICIT/HYPERACTIVITY DISORDER
     Route: 065
  4. MODAFINIL. [Suspect]
     Active Substance: MODAFINIL
     Indication: ATTENTION DEFICIT/HYPERACTIVITY DISORDER
     Dosage: 50 MG, QD
     Route: 048
  5. MODAFINIL. [Suspect]
     Active Substance: MODAFINIL
     Dosage: CUMULATIVE DOSE OF 5000MG/DAY; 100MG TABLETS, FIVE TIMES A DAY, MOSTLY TEN TABLETS AT A TIME.
     Route: 048

REACTIONS (19)
  - Tremor [Unknown]
  - Irritability [Unknown]
  - Fatigue [Unknown]
  - Intentional product misuse [Unknown]
  - Anxiety [Unknown]
  - Hyperhidrosis [Unknown]
  - Intentional overdose [Unknown]
  - Drug dependence [Unknown]
  - Drug abuse [Unknown]
  - Withdrawal syndrome [Unknown]
  - Drug use disorder [Unknown]
  - Abnormal dreams [Unknown]
  - Nightmare [Unknown]
  - Psychomotor hyperactivity [Unknown]
  - Palpitations [Unknown]
  - Agitation [Unknown]
  - Sleep disorder [Unknown]
  - Insomnia [Unknown]
  - Decreased appetite [Unknown]
